FAERS Safety Report 9791558 (Version 1)
Quarter: 2014Q1

REPORT INFORMATION
  Report Type: Spontaneous
  Country: KR (occurrence: KR)
  Receive Date: 20140101
  Receipt Date: 20140101
  Transmission Date: 20141002
  Serious: Yes (Other)
  Sender: FDA-Public Use
  Company Number: PHHY2013KR151523

PATIENT
  Age: 52 Year
  Sex: Female

DRUGS (1)
  1. BENZYLPENICILLIN [Suspect]
     Dosage: 10 MILLION UNITS
     Route: 042

REACTIONS (7)
  - Arrhythmia [Recovered/Resolved]
  - Hyperkalaemia [Unknown]
  - Pallor [Unknown]
  - Loss of consciousness [Unknown]
  - Electrocardiogram QRS complex prolonged [Recovered/Resolved]
  - Accidental exposure to product [Unknown]
  - Blood pressure decreased [Recovered/Resolved]
